FAERS Safety Report 9059026 (Version 1)
Quarter: 2013Q1

REPORT INFORMATION
  Report Type: Spontaneous
  Country: US (occurrence: US)
  Receive Date: 20130211
  Receipt Date: 20130211
  Transmission Date: 20140127
  Serious: No
  Sender: FDA-Public Use
  Company Number: US-BRISTOL-MYERS SQUIBB COMPANY-16560393

PATIENT
  Age: 51 Year
  Sex: Female

DRUGS (3)
  1. METFORMIN HCL [Suspect]
  2. GLIMEPIRIDE [Suspect]
  3. ACTOS [Suspect]

REACTIONS (3)
  - Weight decreased [Unknown]
  - Hyperglycaemia [Unknown]
  - Gallbladder disorder [Unknown]
